FAERS Safety Report 13611076 (Version 1)
Quarter: 2017Q2

REPORT INFORMATION
  Report Type: Spontaneous
  Country: CA (occurrence: CA)
  Receive Date: 20170605
  Receipt Date: 20170605
  Transmission Date: 20170830
  Serious: Yes (Hospitalization, Disabling)
  Sender: FDA-Public Use
  Company Number: CA-TEVA-775536ACC

PATIENT
  Age: 11 Year
  Sex: Female
  Weight: 55 kg

DRUGS (19)
  1. PEGYLATED ASPARAGINASE [Suspect]
     Active Substance: PEGASPARGASE
     Route: 065
  2. DOXORUBICIN HYDROCHLORIDE INJECTION [Concomitant]
     Active Substance: DOXORUBICIN HYDROCHLORIDE
  3. METHOTREXATE SOLUTION FOR INJECTION, 25 MG/ML [Suspect]
     Active Substance: METHOTREXATE SODIUM
  4. METHOTREXATE SOLUTION FOR INJECTION, 25 MG/ML [Suspect]
     Active Substance: METHOTREXATE SODIUM
  5. CYTARABINE INJECTION [Suspect]
     Active Substance: CYTARABINE
     Route: 037
  6. CYTARABINE INJECTION [Suspect]
     Active Substance: CYTARABINE
     Route: 037
  7. METHOTREXATE SOLUTION FOR INJECTION, 25 MG/ML [Suspect]
     Active Substance: METHOTREXATE SODIUM
  8. METHOTREXATE SOLUTION FOR INJECTION, 25 MG/ML [Suspect]
     Active Substance: METHOTREXATE SODIUM
  9. ASPARAGINASE (ERWINIA) [Suspect]
     Active Substance: ASPARAGINASE ERWINIA CHRYSANTHEMI
     Route: 065
  10. CYTARABINE INJECTION [Suspect]
     Active Substance: CYTARABINE
     Indication: LEUKAEMIA
     Route: 042
  11. CYTARABINE INJECTION [Suspect]
     Active Substance: CYTARABINE
     Dosage: ONCE
     Route: 042
  12. CYTARABINE INJECTION [Suspect]
     Active Substance: CYTARABINE
     Dosage: ONCE
     Route: 030
  13. CYTARABINE INJECTION [Suspect]
     Active Substance: CYTARABINE
     Route: 037
  14. MERCAPTOPURINE. [Concomitant]
     Active Substance: MERCAPTOPURINE
  15. CYTARABINE INJECTION [Suspect]
     Active Substance: CYTARABINE
     Route: 065
  16. CYTARABINE INJECTION [Suspect]
     Active Substance: CYTARABINE
     Route: 042
  17. VINCRISTINE SULFATE INJECTION USP [Suspect]
     Active Substance: VINCRISTINE SULFATE
     Route: 065
  18. CYTARABINE INJECTION [Suspect]
     Active Substance: CYTARABINE
     Dosage: ONCE
     Route: 037
  19. CYTARABINE INJECTION [Suspect]
     Active Substance: CYTARABINE
     Route: 042

REACTIONS (1)
  - Neuropathy peripheral [Unknown]
